FAERS Safety Report 5738522-3 (Version None)
Quarter: 2008Q2

REPORT INFORMATION
  Report Type: 
  Country: None (occurrence: None)
  Receive Date: 20080515
  Receipt Date: 20080505
  Transmission Date: 20081010
  Serious: Yes (Other)
  Sender: FDA-Public Use
  Company Number: US-JNJFOC-20080300007

PATIENT
  Sex: Female
  Weight: 113.4 kg

DRUGS (10)
  1. DURAGESIC-100 [Suspect]
     Dosage: 100UG/HR PATCH + 25UG/HR PATCH
     Route: 062
  2. DURAGESIC-100 [Suspect]
     Route: 062
  3. DURAGESIC-100 [Suspect]
     Route: 062
  4. DURAGESIC-100 [Suspect]
     Indication: BACK PAIN
     Route: 062
  5. TEGRETOL [Concomitant]
     Route: 048
  6. TEGRETOL [Concomitant]
     Indication: CONVULSION
     Route: 048
  7. NORTRIPTYLINE HCL [Concomitant]
     Route: 048
  8. HUMULIN 70/30 [Concomitant]
     Indication: DIABETES MELLITUS
     Route: 058
  9. HUMULIN N [Concomitant]
     Indication: DIABETES MELLITUS
     Route: 058
  10. ULTRAM [Concomitant]
     Indication: PAIN
     Route: 048

REACTIONS (2)
  - CONVULSION [None]
  - DRUG EFFECT DECREASED [None]
